FAERS Safety Report 5378987-2 (Version None)
Quarter: 2007Q3

REPORT INFORMATION
  Report Type: 
  Country: None (occurrence: None)
  Receive Date: 20070705
  Receipt Date: 20070627
  Transmission Date: 20080115
  Serious: Yes (Other)
  Sender: FDA-Public Use
  Company Number: US-BRISTOL-MYERS SQUIBB COMPANY-13832944

PATIENT

DRUGS (2)
  1. ERBITUX [Suspect]
     Indication: HEPATIC NEOPLASM MALIGNANT
     Route: 041
  2. DIPHENHYDRAMINE HCL [Concomitant]
     Indication: PREMEDICATION
     Route: 042

REACTIONS (1)
  - ASPARTATE AMINOTRANSFERASE INCREASED [None]
